FAERS Safety Report 13743231 (Version 1)
Quarter: 2017Q3

REPORT INFORMATION
  Report Type: Spontaneous
  Country: SE (occurrence: SE)
  Receive Date: 20170711
  Receipt Date: 20170711
  Transmission Date: 20171127
  Serious: Yes (Other)
  Sender: FDA-Public Use
  Company Number: SE-MYLANLABS-2017M1040108

PATIENT

DRUGS (1)
  1. METHYLPHENIDATE MYLAN 18 MG DEPOTTABLETTER [Suspect]
     Active Substance: METHYLPHENIDATE
     Indication: ATTENTION DEFICIT/HYPERACTIVITY DISORDER
     Dosage: 18MG 1 TABLETT DAGLIGEN
     Route: 048
     Dates: start: 20161220, end: 20170105

REACTIONS (6)
  - Anger [Recovered/Resolved]
  - Personality change [Recovered/Resolved]
  - Depressed mood [Recovered/Resolved]
  - Communication disorder [Recovered/Resolved]
  - Product substitution issue [Recovered/Resolved]
  - Irritability [Recovered/Resolved]

NARRATIVE: CASE EVENT DATE: 20170105
